FAERS Safety Report 9833964 (Version 6)
Quarter: 2014Q4

REPORT INFORMATION
  Report Type: Report from Study
  Country: AU (occurrence: AU)
  Receive Date: 20140122
  Receipt Date: 20141028
  Transmission Date: 20150529
  Serious: Yes (Other)
  Sender: FDA-Public Use
  Company Number: AU-BRISTOL-MYERS SQUIBB COMPANY-19408541

PATIENT
  Age: 65 Year
  Sex: Female

DRUGS (10)
  1. ADALAT [Concomitant]
     Active Substance: NIFEDIPINE
     Indication: BLOOD PRESSURE
  2. NEXIUM [Concomitant]
     Active Substance: ESOMEPRAZOLE MAGNESIUM
  3. CRESTOR [Concomitant]
     Active Substance: ROSUVASTATIN CALCIUM
  4. NORVASC [Concomitant]
     Active Substance: AMLODIPINE BESYLATE
  5. ALDOMET [Concomitant]
     Active Substance: METHYLDOPA
  6. ALDORIL [Concomitant]
     Active Substance: HYDROCHLOROTHIAZIDE\METHYLDOPA
     Indication: HYPERTENSION
  7. MICARDIS PLUS [Concomitant]
     Active Substance: HYDROCHLOROTHIAZIDE\TELMISARTAN
     Indication: HYPERTENSION
  8. PARACODOL [Concomitant]
     Indication: HYPERTENSION
  9. SPRYCEL [Suspect]
     Active Substance: DASATINIB
     Indication: CHRONIC MYELOID LEUKAEMIA
     Route: 048
     Dates: start: 20070501, end: 201407
  10. VOLTAREN [Concomitant]
     Active Substance: DICLOFENAC SODIUM
     Indication: ARTHRITIS

REACTIONS (14)
  - Rash [Not Recovered/Not Resolved]
  - Weight decreased [Not Recovered/Not Resolved]
  - Pleural effusion [Recovering/Resolving]
  - Cellulitis [Unknown]
  - Cough [Not Recovered/Not Resolved]
  - Dyspnoea [Not Recovered/Not Resolved]
  - Pulmonary hypertension [Recovering/Resolving]
  - Peripheral venous disease [Unknown]
  - Joint swelling [Not Recovered/Not Resolved]
  - Right ventricular failure [Unknown]
  - Fatigue [Unknown]
  - Blood pressure inadequately controlled [Unknown]
  - Haemoglobin decreased [Unknown]
  - Sleep apnoea syndrome [Unknown]

NARRATIVE: CASE EVENT DATE: 201310
